FAERS Safety Report 13057388 (Version 2)
Quarter: 2016Q4

REPORT INFORMATION
  Report Type: Spontaneous
  Country: US (occurrence: US)
  Receive Date: 20161223
  Receipt Date: 20161226
  Transmission Date: 20170207
  Serious: Yes (Hospitalization, Other)
  Sender: FDA-Public Use
  Company Number: US-JNJFOC-20161214710

PATIENT
  Age: 54 Year
  Sex: Female

DRUGS (2)
  1. MINOXIDIL. [Suspect]
     Active Substance: MINOXIDIL
     Indication: COUGH
     Dosage: DOSE: APPROXIMATELY 30 ML, EQUATING TO 600 MG OF MINOXIDIL
     Route: 048
  2. MINOXIDIL. [Suspect]
     Active Substance: MINOXIDIL
     Route: 048

REACTIONS (4)
  - Hypotension [Recovered/Resolved]
  - Accidental poisoning [Recovered/Resolved]
  - Accidental exposure to product [Recovered/Resolved]
  - Myocardial infarction [Recovered/Resolved]
